FAERS Safety Report 11505650 (Version 1)
Quarter: 2015Q3

REPORT INFORMATION
  Report Type: Spontaneous
  Country: US (occurrence: US)
  Receive Date: 20150915
  Receipt Date: 20150915
  Transmission Date: 20151125
  Serious: No
  Sender: FDA-Public Use
  Company Number: US-ROCHE-771324

PATIENT
  Age: 52 Year
  Sex: Female
  Weight: 83 kg

DRUGS (2)
  1. PEGASYS [Suspect]
     Active Substance: PEGINTERFERON ALFA-2A
     Indication: HEPATITIS C
     Route: 058
  2. RIBAVIRIN. [Suspect]
     Active Substance: RIBAVIRIN
     Indication: HEPATITIS C
     Dosage: 600 MG IN MORNING AND 400 MG IN EVENING
     Route: 048

REACTIONS (2)
  - Stomatitis [Not Recovered/Not Resolved]
  - Nasal ulcer [Not Recovered/Not Resolved]

NARRATIVE: CASE EVENT DATE: 20110328
